FAERS Safety Report 9887473 (Version 2)
Quarter: 2014Q3

REPORT INFORMATION
  Report Type: Spontaneous
  Country: CA (occurrence: None)
  Receive Date: 20140206
  Receipt Date: 20140714
  Transmission Date: 20150326
  Serious: Yes (Death, Hospitalization)
  Sender: FDA-Public Use
  Company Number: CA-014557

PATIENT
  Age: 82 Year
  Sex: Male

DRUGS (8)
  1. COLD FX [Concomitant]
     Active Substance: PANAX GINSENG WHOLE
  2. TYLENOL /00020001/ () [Concomitant]
  3. FIRMAGON [Suspect]
     Active Substance: DEGARELIX ACETATE
     Indication: PROSTATE CANCER
     Route: 058
     Dates: start: 20120821
  4. OMEGA 3 FISH OILS [Concomitant]
  5. ZYTIGA [Concomitant]
     Active Substance: ABIRATERONE ACETATE
  6. CALCIUM [Concomitant]
     Active Substance: CALCIUM
  7. ADDITIVA VITAMIN C [Concomitant]
  8. PREDNISONE. [Concomitant]
     Active Substance: PREDNISONE

REACTIONS (2)
  - Asthenia [None]
  - Abasia [None]

NARRATIVE: CASE EVENT DATE: 20140108
